FAERS Safety Report 14806244 (Version 1)
Quarter: 2018Q2

REPORT INFORMATION
  Report Type: Spontaneous
  Country: US (occurrence: US)
  Receive Date: 20180425
  Receipt Date: 20180425
  Transmission Date: 20180711
  Serious: No
  Sender: FDA-Public Use
  Company Number: US-UPSHER-SMITH LABORATORIES, LLC-2017USL00043

PATIENT
  Age: 13 Year
  Sex: Female
  Weight: 47.17 kg

DRUGS (5)
  1. VITAMIN D [Concomitant]
     Active Substance: CHOLECALCIFEROL
     Dosage: 5000 IU, 1X/DAY
  2. QUDEXY XR [Suspect]
     Active Substance: TOPIRAMATE
     Indication: HEADACHE
     Dosage: 50 MG, 1X/DAY
     Route: 048
     Dates: start: 20170512, end: 20170518
  3. MULTIVITAMIN (ONE-A-DAY; VITAFUSION) [Concomitant]
  4. QUDEXY XR [Suspect]
     Active Substance: TOPIRAMATE
     Dosage: 100 MG, 1X/DAY
     Route: 048
     Dates: start: 20170504, end: 20170511
  5. PROMETHAZINE [Concomitant]
     Active Substance: PROMETHAZINE\PROMETHAZINE HYDROCHLORIDE
     Indication: NAUSEA
     Dosage: 12.5 MG, AS NEEDED

REACTIONS (4)
  - Abdominal discomfort [Recovering/Resolving]
  - Unevaluable event [Recovering/Resolving]
  - Abdominal pain upper [Recovering/Resolving]
  - Drug ineffective [Recovering/Resolving]

NARRATIVE: CASE EVENT DATE: 201705
